FAERS Safety Report 6848884-1 (Version None)
Quarter: 2010Q3

REPORT INFORMATION
  Report Type: 
  Country: None (occurrence: None)
  Receive Date: 20100716
  Receipt Date: 20070926
  Transmission Date: 20110219
  Serious: No
  Sender: FDA-Public Use
  Company Number: US-PFIZER INC-2007075582

PATIENT
  Sex: Male
  Weight: 59 kg

DRUGS (8)
  1. CHANTIX [Suspect]
     Indication: SMOKING CESSATION THERAPY
     Dates: start: 20070902
  2. ADVAIR DISKUS 100/50 [Concomitant]
  3. LIPITOR [Concomitant]
     Indication: BLOOD CHOLESTEROL INCREASED
  4. KLONOPIN [Concomitant]
     Indication: PANIC ATTACK
  5. KLONOPIN [Concomitant]
     Indication: INSOMNIA
  6. RESTORIL [Concomitant]
     Indication: ANXIETY
  7. RESTORIL [Concomitant]
     Indication: INSOMNIA
  8. DARVOCET [Concomitant]
     Indication: PAIN

REACTIONS (2)
  - DRUG INEFFECTIVE [None]
  - NAUSEA [None]
